FAERS Safety Report 14771269 (Version 1)
Quarter: 2018Q2

REPORT INFORMATION
  Report Type: Spontaneous
  Country: US (occurrence: US)
  Receive Date: 20180417
  Receipt Date: 20180417
  Transmission Date: 20180711
  Serious: No
  Sender: FDA-Public Use
  Company Number: US-ALLERGAN-1749820US

PATIENT
  Sex: Female

DRUGS (2)
  1. COMBIGAN [Concomitant]
     Active Substance: BRIMONIDINE TARTRATE\TIMOLOL MALEATE
     Indication: GLAUCOMA
     Dosage: UNK, BID
     Route: 047
     Dates: start: 20170729
  2. LUMIGAN [Suspect]
     Active Substance: BIMATOPROST
     Indication: DRY EYE
     Dosage: 2 GTT, QHS
     Route: 047

REACTIONS (1)
  - Drug ineffective [Unknown]
